FAERS Safety Report 9644230 (Version 2)
Quarter: 2013Q4

REPORT INFORMATION
  Report Type: Report from Study
  Country: BR (occurrence: BR)
  Receive Date: 20131024
  Receipt Date: 20131024
  Transmission Date: 20140711
  Serious: No
  Sender: FDA-Public Use
  Company Number: BR-US-EMD SERONO, INC.-7237157

PATIENT
  Sex: Female

DRUGS (1)
  1. REBIF [Suspect]
     Indication: RELAPSING-REMITTING MULTIPLE SCLEROSIS
     Dates: start: 20110215

REACTIONS (7)
  - Muscle tightness [Unknown]
  - Muscle twitching [Unknown]
  - Hemiparesis [Unknown]
  - Mood altered [Unknown]
  - Injection site erythema [Not Recovered/Not Resolved]
  - Injection site haematoma [Unknown]
  - Injection site pain [Unknown]
